FAERS Safety Report 18755310 (Version 1)
Quarter: 2021Q1

REPORT INFORMATION
  Report Type: Report from Study
  Country: US (occurrence: US)
  Receive Date: 20210119
  Receipt Date: 20210119
  Transmission Date: 20210419
  Serious: Yes (Other)
  Sender: FDA-Public Use
  Company Number: US-SHIRE-US202031010

PATIENT
  Sex: Female

DRUGS (2)
  1. GAMMAGARD LIQUID [Suspect]
     Active Substance: HUMAN IMMUNOGLOBULIN G
     Indication: PRIMARY IMMUNODEFICIENCY SYNDROME
     Dosage: UNK GRAM
     Route: 065
  2. GAMMAGARD LIQUID [Suspect]
     Active Substance: HUMAN IMMUNOGLOBULIN G
     Dosage: 20 GRAM
     Route: 065

REACTIONS (9)
  - Cardiac dysfunction [Unknown]
  - Oral herpes [Unknown]
  - Sinusitis [Unknown]
  - Back pain [Unknown]
  - Bone pain [Unknown]
  - Somnolence [Unknown]
  - Eye pain [Unknown]
  - Neck pain [Unknown]
  - Asthma [Unknown]
